FAERS Safety Report 18665856 (Version 4)
Quarter: 2021Q1

REPORT INFORMATION
  Report Type: Spontaneous
  Country: JP (occurrence: JP)
  Receive Date: 20201226
  Receipt Date: 20210204
  Transmission Date: 20210419
  Serious: Yes (Hospitalization, Other)
  Sender: FDA-Public Use
  Company Number: JP-GLAXOSMITHKLINE-JP2020JPN252713

PATIENT
  Age: 83 Year
  Sex: Male
  Weight: 56 kg

DRUGS (2)
  1. VALTREX [Suspect]
     Active Substance: VALACYCLOVIR HYDROCHLORIDE
     Indication: FACIAL PARALYSIS
     Dosage: 1000 MG, TID
     Route: 048
     Dates: start: 20191227, end: 20200101
  2. METHYCOBAL [Concomitant]
     Active Substance: METHYLCOBALAMIN
     Indication: NEUROPATHY PERIPHERAL
     Dosage: 500 MG, TID
     Dates: start: 20200101, end: 20200104

REACTIONS (8)
  - Toxic encephalopathy [Recovered/Resolved]
  - Nephropathy toxic [Recovered/Resolved]
  - Abnormal behaviour [Recovered/Resolved]
  - Fluid intake reduced [Recovered/Resolved]
  - Off label use [Unknown]
  - Dehydration [Recovered/Resolved]
  - Renal impairment [Recovered/Resolved]
  - Product use in unapproved indication [Unknown]

NARRATIVE: CASE EVENT DATE: 20191231
